FAERS Safety Report 6787491-6 (Version None)
Quarter: 2010Q2

REPORT INFORMATION
  Report Type: 
  Country: None (occurrence: None)
  Receive Date: 20100623
  Receipt Date: 20081027
  Transmission Date: 20101027
  Serious: Yes (Hospitalization, Other)
  Sender: FDA-Public Use
  Company Number: US-PFIZER INC-2006121454

PATIENT
  Sex: Female
  Weight: 51.3 kg

DRUGS (6)
  1. SOMAVERT [Suspect]
     Indication: ACROMEGALY
     Dosage: EVERY DAY
     Dates: start: 20040101
  2. SYNTHROID [Concomitant]
  3. AVALIDE [Concomitant]
  4. AVAPRO [Concomitant]
  5. TOPAMAX [Concomitant]
  6. ZOMIG [Concomitant]

REACTIONS (3)
  - HEADACHE [None]
  - LIPOHYPERTROPHY [None]
  - PITUITARY TUMOUR BENIGN [None]
